FAERS Safety Report 4640687-1 (Version None)
Quarter: 2005Q2

REPORT INFORMATION
  Report Type: 
  Country: None (occurrence: None)
  Receive Date: 20050321
  Receipt Date: 20040730
  Transmission Date: 20051028
  Serious: Yes (Hospitalization)
  Sender: FDA-Public Use
  Company Number: NAPR0000073004

PATIENT
  Age: 12 Year
  Sex: Female
  Weight: 35 kg

DRUGS (2)
  1. NAPROXEN [Suspect]
     Indication: ARTHRALGIA
  2. NAPROXEN [Suspect]
     Indication: JOINT SWELLING

REACTIONS (6)
  - ANOREXIA [None]
  - ARTHRALGIA [None]
  - CLUBBING [None]
  - FATIGUE [None]
  - PULMONARY MASS [None]
  - WEIGHT DECREASED [None]
